FAERS Safety Report 10417461 (Version 2)
Quarter: 2014Q3

REPORT INFORMATION
  Report Type: Report from Study
  Country: GB (occurrence: GB)
  Receive Date: 20140829
  Receipt Date: 20140902
  Transmission Date: 20150326
  Serious: Yes (Hospitalization)
  Sender: FDA-Public Use
  Company Number: GB-ROCHE-1455878

PATIENT
  Age: 55 Year
  Sex: Male
  Weight: 79.8 kg

DRUGS (1)
  1. BEVACIZUMAB [Suspect]
     Active Substance: BEVACIZUMAB
     Indication: COLON CANCER
     Route: 042

REACTIONS (1)
  - Renal failure acute [Unknown]

NARRATIVE: CASE EVENT DATE: 20140823
